FAERS Safety Report 23733939 (Version 2)
Quarter: 2024Q3

REPORT INFORMATION
  Report Type: Spontaneous
  Country: PL (occurrence: PL)
  Receive Date: 20240412
  Receipt Date: 20240711
  Transmission Date: 20241017
  Serious: Yes (Other)
  Sender: NOVARTIS
  Company Number: None

PATIENT
  Age: 55 Year
  Sex: Female

DRUGS (3)
  1. LETROZOLE [Suspect]
     Active Substance: LETROZOLE
     Indication: Invasive breast carcinoma
     Dosage: UNK
     Route: 065
  2. DOXORUBICIN [Suspect]
     Active Substance: DOXORUBICIN
     Indication: Invasive breast carcinoma
     Dosage: 6 AT REGIMEN 50 MG/M2, EVERY 3 WEEKS
     Route: 065
  3. DOCETAXEL [Suspect]
     Active Substance: DOCETAXEL\DOCETAXEL ANHYDROUS
     Indication: Invasive breast carcinoma
     Dosage: 6 AT REGIMEN 75 MG/M2, EVERY 3 WEEKS
     Route: 065

REACTIONS (2)
  - Post thrombotic syndrome [Unknown]
  - Deep vein thrombosis [Unknown]
